FAERS Safety Report 23612152 (Version 1)
Quarter: 2024Q1

REPORT INFORMATION
  Report Type: Spontaneous
  Country: CN (occurrence: CN)
  Receive Date: 20240308
  Receipt Date: 20240308
  Transmission Date: 20240410
  Serious: Yes (Other)
  Sender: FDA-Public Use
  Company Number: CN-GUERBET / FUNDTRIP PHARMACEUTICALS-CN-20240067

PATIENT
  Age: 56 Year
  Sex: Male

DRUGS (3)
  1. LIPIODOL [Suspect]
     Active Substance: ETHIODIZED OIL
     Indication: Transcatheter arterial chemoembolisation
     Dosage: GELATIN SPONGE PARTICLES LOADED WITH LIPIODOL AND IDARUBICIN SUSPENSION
     Route: 013
     Dates: start: 202210, end: 202210
  2. DEVICE\GELATIN [Suspect]
     Active Substance: DEVICE\GELATIN
     Indication: Transcatheter arterial chemoembolisation
     Dosage: GELATIN SPONGE PARTICLES LOADED WITH LIPIODOL AND IDARUBICIN SUSPENSION
     Route: 013
     Dates: start: 202210, end: 202210
  3. IDARUBICIN [Suspect]
     Active Substance: IDARUBICIN
     Indication: Transcatheter arterial chemoembolisation
     Dosage: GELATIN SPONGE PARTICLES LOADED WITH LIPIODOL AND IDARUBICIN SUSPENSION
     Route: 013
     Dates: start: 202210, end: 202210

REACTIONS (2)
  - Acute hepatic failure [Recovered/Resolved]
  - Ascites [Recovered/Resolved]

NARRATIVE: CASE EVENT DATE: 20221001
